FAERS Safety Report 9633733 (Version 2)
Quarter: 2013Q4

REPORT INFORMATION
  Report Type: Spontaneous
  Country: US (occurrence: US)
  Receive Date: 20131021
  Receipt Date: 20131119
  Transmission Date: 20140711
  Serious: No
  Sender: FDA-Public Use
  Company Number: US-PFIZER INC-2013296536

PATIENT
  Sex: Female

DRUGS (2)
  1. LYRICA [Suspect]
     Dosage: 75 UNKNOWN, 2X/DAY
     Dates: start: 201310
  2. LYRICA [Suspect]
     Dosage: UNK

REACTIONS (10)
  - Fatigue [Unknown]
  - Gait disturbance [Unknown]
  - Dizziness [Unknown]
  - Memory impairment [Unknown]
  - Discomfort [Unknown]
  - Feeling of relaxation [Unknown]
  - Burning sensation [Unknown]
  - Feeling abnormal [Unknown]
  - Emotional disorder [Unknown]
  - Neuropathy peripheral [Unknown]
